FAERS Safety Report 5330929-1 (Version None)
Quarter: 2007Q2

REPORT INFORMATION
  Report Type: 
  Country: None (occurrence: None)
  Receive Date: 20070227
  Receipt Date: 20060123
  Transmission Date: 20071010
  Serious: Yes (Other)
  Sender: FDA-Public Use
  Company Number: 433471

PATIENT
  Age: 15 Year
  Sex: Male
  Weight: 53.1 kg

DRUGS (1)
  1. ACCUTANE [Suspect]
     Indication: ACNE
     Dosage: 40 MG 2 PER DAY ORAL
     Route: 048
     Dates: end: 20060115

REACTIONS (2)
  - ARTHRALGIA [None]
  - BACK PAIN [None]
